FAERS Safety Report 7933288-0 (Version None)
Quarter: 2011Q4

REPORT INFORMATION
  Report Type: 
  Country: None (occurrence: None)
  Receive Date: 20111122
  Receipt Date: 20111115
  Transmission Date: 20120403
  Serious: Yes (Other)
  Sender: FDA-Public Use
  Company Number: PHHY2011GB63751

PATIENT
  Age: 61 Year
  Sex: Female

DRUGS (12)
  1. DILTIAZEM HCL [Suspect]
     Route: 048
     Dates: start: 20101006, end: 20101104
  2. INDAPAMIDE [Concomitant]
     Dosage: 1.5 MG, UNK
     Dates: start: 20101001
  3. LOSARTAN POTASSIUM [Concomitant]
     Dosage: UNK UKN, UNK
  4. BENDROFLUMETHIAZIDE [Concomitant]
     Dosage: UNK UKN, UNK
     Dates: start: 20110113
  5. CHAPARRAL DANDELION BLEND [Concomitant]
     Dosage: UNK UKN, UNK
  6. SIMVASTATIN [Concomitant]
     Dosage: 40 MG, UNK
     Dates: start: 20100913
  7. ASPIRIN [Concomitant]
     Dosage: 75 MG, QD
     Dates: start: 20101202
  8. ALTACE [Concomitant]
     Dosage: 2.5 MG, QD
     Dates: start: 20101206, end: 20101216
  9. MEBEVERINE [Concomitant]
  10. SOTALOL HCL [Concomitant]
  11. BISOPROLOL FUMARATE [Suspect]
     Dosage: UNK UKN, UNK
     Dates: start: 20101001, end: 20101006
  12. ALTACE [Concomitant]
     Indication: BLOOD PRESSURE
     Dosage: 075 MG, UNK
     Dates: start: 20101118

REACTIONS (9)
  - HYPOAESTHESIA [None]
  - VERTIGO [None]
  - MIGRAINE WITH AURA [None]
  - DRUG HYPERSENSITIVITY [None]
  - VISION BLURRED [None]
  - VISUAL IMPAIRMENT [None]
  - BLOOD PRESSURE INCREASED [None]
  - DIZZINESS [None]
  - NAUSEA [None]
